FAERS Safety Report 9592334 (Version 1)
Quarter: 2013Q3

REPORT INFORMATION
  Report Type: Spontaneous
  Country: US (occurrence: None)
  Receive Date: 20130930
  Receipt Date: 20130930
  Transmission Date: 20140515
  Serious: Yes (Other)
  Sender: FDA-Public Use
  Company Number: 1000047360

PATIENT
  Age: 68 Year
  Sex: Female

DRUGS (4)
  1. LINZESS (LINACLOTIDE) (145 MICROGRAM, CAPSULES) [Suspect]
     Indication: IRRITABLE BOWEL SYNDROME
     Route: 048
     Dates: start: 201307, end: 201307
  2. ZANTAC (RANITIDINE HYDROCHLORIDE) (RANITIDINE HYDROCHLORIDE) [Concomitant]
  3. GAS-X (SIMETICONE) (SIMETICONE) [Concomitant]
  4. BISOPROLOL (BISOPROLOL) [Concomitant]

REACTIONS (4)
  - Abdominal pain upper [None]
  - Abdominal distension [None]
  - Flatulence [None]
  - Dyspepsia [None]
